FAERS Safety Report 11569916 (Version 2)
Quarter: 2015Q4

REPORT INFORMATION
  Report Type: Spontaneous
  Country: CA (occurrence: CA)
  Receive Date: 20150929
  Receipt Date: 20151006
  Transmission Date: 20160304
  Serious: Yes (Hospitalization)
  Sender: FDA-Public Use
  Company Number: CA-APOTEX-2015AP012991

PATIENT
  Age: 63 Year
  Sex: Male
  Weight: 74 kg

DRUGS (5)
  1. APO-TERBINAFINE [Suspect]
     Active Substance: TERBINAFINE
     Indication: ONYCHOMYCOSIS
     Dosage: 250 MG/DAY
     Route: 048
     Dates: start: 20090805
  2. APO-METOPROLOL [Interacting]
     Active Substance: METOPROLOL
     Indication: ACUTE CORONARY SYNDROME
     Dosage: 200 MG/DAY
     Route: 048
  3. APO-METOPROLOL [Interacting]
     Active Substance: METOPROLOL
     Dosage: 100 MG/DAY
     Route: 048
  4. RIVASTIGMINE. [Concomitant]
     Active Substance: RIVASTIGMINE
     Indication: DEMENTIA ALZHEIMER^S TYPE
     Dosage: UNK
     Route: 048
  5. APO-METOPROLOL [Interacting]
     Active Substance: METOPROLOL
     Dosage: 75 MG/DAY
     Route: 048

REACTIONS (2)
  - Sinus bradycardia [Recovered/Resolved]
  - Drug interaction [Recovered/Resolved]
